FAERS Safety Report 11405617 (Version 1)
Quarter: 2015Q3

REPORT INFORMATION
  Report Type: Spontaneous
  Country: US (occurrence: US)
  Receive Date: 20150821
  Receipt Date: 20150821
  Transmission Date: 20151125
  Serious: No
  Sender: FDA-Public Use
  Company Number: US-PFIZER INC-2015279408

PATIENT
  Sex: Female

DRUGS (5)
  1. CORTEF [Suspect]
     Active Substance: HYDROCORTISONE
     Dosage: UNK
  2. HYDROCORTISONE. [Suspect]
     Active Substance: HYDROCORTISONE
     Dosage: UNK
  3. DEXAMETHASONE. [Suspect]
     Active Substance: DEXAMETHASONE
     Dosage: UNK
  4. PREDNISONE. [Suspect]
     Active Substance: PREDNISONE
     Dosage: UNK
  5. HYDROCORTISONE. [Suspect]
     Active Substance: HYDROCORTISONE
     Dosage: UNK

REACTIONS (5)
  - Neurological symptom [Unknown]
  - Confusional state [Unknown]
  - Tinnitus [Unknown]
  - Feeling abnormal [Unknown]
  - Discomfort [Unknown]
